FAERS Safety Report 7726504-1 (Version None)
Quarter: 2011Q3

REPORT INFORMATION
  Report Type: 
  Country: None (occurrence: None)
  Receive Date: 20110902
  Receipt Date: 20110829
  Transmission Date: 20111222
  Serious: Yes (Other)
  Sender: FDA-Public Use
  Company Number: JP-PFIZER INC-2011200865

PATIENT
  Age: 68 Year
  Sex: Male

DRUGS (7)
  1. CLONAZEPAM [Concomitant]
     Dosage: UNK
     Route: 048
  2. LYRICA [Suspect]
     Indication: BACK PAIN
  3. LYRICA [Suspect]
     Indication: BONE PAIN
     Dosage: 225 MG/DAY
     Route: 048
     Dates: start: 20110719
  4. AMOBAN [Concomitant]
     Dosage: UNK
     Route: 048
  5. LORCAM [Concomitant]
     Dosage: UNK
     Route: 048
  6. NEUROTROPIN [Concomitant]
     Dosage: UNK
     Route: 048
  7. URIEF [Concomitant]
     Dosage: UNK
     Route: 048

REACTIONS (1)
  - COGNITIVE DISORDER [None]
